FAERS Safety Report 11953898 (Version 1)
Quarter: 2016Q1

REPORT INFORMATION
  Report Type: Report from Study
  Country: US (occurrence: US)
  Receive Date: 20160125
  Receipt Date: 20160125
  Transmission Date: 20160526
  Serious: No
  Sender: FDA-Public Use
  Company Number: US-AMGEN-USASL2016006115

PATIENT
  Age: 38 Year
  Sex: Female

DRUGS (1)
  1. ENBREL [Suspect]
     Active Substance: ETANERCEPT
     Indication: RHEUMATOID ARTHRITIS
     Dosage: 50 MG, QWK
     Route: 065
     Dates: start: 2011

REACTIONS (8)
  - Musculoskeletal stiffness [Not Recovered/Not Resolved]
  - Depression [Unknown]
  - Activities of daily living impaired [Unknown]
  - Joint stiffness [Not Recovered/Not Resolved]
  - Memory impairment [Unknown]
  - Pain in extremity [Not Recovered/Not Resolved]
  - Amnesia [Unknown]
  - Arthralgia [Not Recovered/Not Resolved]
